FAERS Safety Report 4532228-4 (Version None)
Quarter: 2004Q4

REPORT INFORMATION
  Report Type: 
  Country: None (occurrence: None)
  Receive Date: 20041217
  Receipt Date: 20041110
  Transmission Date: 20050328
  Serious: Yes (Hospitalization)
  Sender: FDA-Public Use
  Company Number: 2004AP05754

PATIENT
  Age: 63 Year
  Sex: Male

DRUGS (2)
  1. NEXIUM [Suspect]
     Dates: start: 20040215, end: 20040315
  2. FLUCLOXACILLIN [Suspect]
     Dates: start: 20040308, end: 20040309

REACTIONS (1)
  - HEPATITIS CHOLESTATIC [None]
